FAERS Safety Report 11235574 (Version 1)
Quarter: 2015Q3

REPORT INFORMATION
  Report Type: Spontaneous
  Country: US (occurrence: US)
  Receive Date: 20150702
  Receipt Date: 20150702
  Transmission Date: 20151125
  Serious: No
  Sender: FDA-Public Use
  Company Number: US-009507513-1506USA002469

PATIENT
  Sex: Female

DRUGS (1)
  1. NUVARING [Suspect]
     Active Substance: ETHINYL ESTRADIOL\ETONOGESTREL
     Indication: CONTRACEPTION
     Dosage: DOSE/FREQUENCY: .015/.12MG/UNSPECIFIED
     Route: 067

REACTIONS (4)
  - No adverse event [Unknown]
  - Medical device discomfort [Unknown]
  - Device breakage [Unknown]
  - Product quality issue [Unknown]
